FAERS Safety Report 12809412 (Version 1)
Quarter: 2016Q4

REPORT INFORMATION
  Report Type: Report from Study
  Country: US (occurrence: US)
  Receive Date: 20161005
  Receipt Date: 20161005
  Transmission Date: 20170207
  Serious: Yes (Life-Threatening, Hospitalization, Other)
  Sender: FDA-Public Use
  Company Number: US-ROCHE-1667064

PATIENT
  Age: 61 Year
  Sex: Female
  Weight: 132.3 kg

DRUGS (11)
  1. BEVACIZUMAB [Suspect]
     Active Substance: BEVACIZUMAB
     Indication: ENDOMETRIAL ADENOCARCINOMA
     Dosage: OVER 30-90 MINUTES ON DAY 1 X 6 CYCLES?LAST DOSE PRIOR TO SAE: 04/FEB/2011
     Route: 042
     Dates: start: 20101221
  2. BEVACIZUMAB [Suspect]
     Active Substance: BEVACIZUMAB
     Dosage: OVER 30-90 MINUTES ON DAY 1 X 6 CYCLES, LAST DOSE
     Route: 042
     Dates: start: 20110318
  3. CARBOPLATIN. [Suspect]
     Active Substance: CARBOPLATIN
     Indication: ENDOMETRIAL ADENOCARCINOMA
     Dosage: DOSE: AUC 6?OVER 30 MINUTES ON DAY 1 X 6 CYCLES, LAST DOSE PRIOR TO SAE: 04/FEB/2011
     Route: 042
     Dates: start: 20101221
  4. CARBOPLATIN. [Suspect]
     Active Substance: CARBOPLATIN
     Dosage: DOSE: AUC 6?OVER 30 MINUTES ON DAY 1 X 6 CYCLES,
     Route: 042
     Dates: start: 20110204
  5. IXABEPILONE [Suspect]
     Active Substance: IXABEPILONE
     Indication: ENDOMETRIAL ADENOCARCINOMA
     Dosage: OVER 1 HR ON DAY 1 X 6 CYCLES
     Route: 042
     Dates: start: 20101221
  6. CARBOPLATIN. [Suspect]
     Active Substance: CARBOPLATIN
     Dosage: DOSE: AUC 6?OVER 30 MINUTES ON DAY 1 X 6 CYCLES, LAST DOSE
     Route: 042
     Dates: start: 20110318
  7. IXABEPILONE [Suspect]
     Active Substance: IXABEPILONE
     Dosage: OVER 1 HR ON DAY 1 X 6 CYCLES
     Route: 042
     Dates: start: 20110318
  8. LOVENOX [Concomitant]
     Active Substance: ENOXAPARIN SODIUM
  9. BEVACIZUMAB [Suspect]
     Active Substance: BEVACIZUMAB
     Dosage: OVER 30-90 MINUTES ON DAY 1 X 6 CYCLES
     Route: 042
     Dates: start: 20110204
  10. IXABEPILONE [Suspect]
     Active Substance: IXABEPILONE
     Dosage: OVER 1 HR ON DAY 1 X 6 CYCLES
     Route: 042
     Dates: start: 20110204
  11. DECADRON [Concomitant]
     Active Substance: DEXAMETHASONE

REACTIONS (24)
  - Hypokalaemia [Unknown]
  - Dehydration [Recovered/Resolved]
  - Nodal arrhythmia [Recovered/Resolved]
  - Dehydration [Unknown]
  - Platelet count decreased [Recovered/Resolved]
  - Headache [Unknown]
  - Vision blurred [Recovered/Resolved]
  - Blood potassium decreased [Unknown]
  - Anaemia [Recovered/Resolved]
  - Hypocalcaemia [Unknown]
  - Sinus bradycardia [Unknown]
  - Hyponatraemia [Unknown]
  - Neutrophil count decreased [Recovered/Resolved]
  - Hyponatraemia [Recovered/Resolved]
  - Nausea [Unknown]
  - Arrhythmia supraventricular [Recovered/Resolved]
  - Neutrophil count decreased [Unknown]
  - Speech disorder [Recovered/Resolved]
  - Aphasia [Recovered/Resolved]
  - Platelet count decreased [Unknown]
  - Urinary tract infection [Recovered/Resolved]
  - Hypocalcaemia [Unknown]
  - White blood cell count decreased [Unknown]
  - Headache [Recovered/Resolved]

NARRATIVE: CASE EVENT DATE: 20110101
